FAERS Safety Report 6333240-5 (Version None)
Quarter: 2009Q3

REPORT INFORMATION
  Report Type: 
  Country: None (occurrence: None)
  Receive Date: 20090828
  Receipt Date: 20090818
  Transmission Date: 20100115
  Serious: Yes (Disabling)
  Sender: FDA-Public Use
  Company Number: DE-ABBOTT-09P-062-0592629-00

PATIENT
  Sex: Male

DRUGS (1)
  1. ENANTONE MONATSDEPOT [Suspect]
     Indication: LIBIDO INCREASED
     Route: 058
     Dates: start: 20000101, end: 20090101

REACTIONS (1)
  - BONE DENSITY DECREASED [None]
